FAERS Safety Report 9634158 (Version 1)
Quarter: 2013Q4

REPORT INFORMATION
  Report Type: Spontaneous
  Country: US (occurrence: US)
  Receive Date: 20131021
  Receipt Date: 20131021
  Transmission Date: 20140711
  Serious: No
  Sender: FDA-Public Use
  Company Number: US-PURDUE-USA-2013-0100747

PATIENT
  Age: 69 Year
  Sex: Male

DRUGS (3)
  1. BUTRANS [Suspect]
     Indication: PAIN
     Dosage: 5 MCG/HR, UNK
     Route: 062
     Dates: start: 20130127, end: 201302
  2. BUTRANS [Suspect]
     Dosage: 10 MCG/HR, UNK
     Route: 062
     Dates: start: 20130210, end: 20130309
  3. BUTRANS [Suspect]
     Dosage: 20 MCG/HR, UNK
     Route: 062
     Dates: start: 20130309, end: 20130330

REACTIONS (8)
  - Application site burn [Not Recovered/Not Resolved]
  - Inadequate analgesia [Not Recovered/Not Resolved]
  - Drug effect decreased [Not Recovered/Not Resolved]
  - Application site pruritus [Not Recovered/Not Resolved]
  - Nausea [Recovered/Resolved]
  - Hyperhidrosis [Recovered/Resolved]
  - Feeling abnormal [Recovered/Resolved]
  - Retching [Recovered/Resolved]
